FAERS Safety Report 16134821 (Version 8)
Quarter: 2019Q2

REPORT INFORMATION
  Report Type: Report from Study
  Country: US (occurrence: US)
  Receive Date: 20190329
  Receipt Date: 20190614
  Transmission Date: 20190711
  Serious: Yes (Death, Life-Threatening, Hospitalization)
  Sender: FDA-Public Use
  Company Number: US-REGENERON PHARMACEUTICALS, INC.-2019-24715

PATIENT

DRUGS (11)
  1. SAR439459 [Suspect]
     Active Substance: SAR-439459
     Indication: COLORECTAL ADENOCARCINOMA
     Dosage: 0.05 MG/KG, QOW
     Route: 042
     Dates: start: 20190130, end: 20190130
  2. IRBESARTAN. [Concomitant]
     Active Substance: IRBESARTAN
     Indication: HYPERTENSION
     Dosage: 300 MG, QD
     Route: 048
     Dates: start: 20150813
  3. CEMIPLIMAB [Suspect]
     Active Substance: CEMIPLIMAB
     Dosage: 3 MG/KG, QOW
     Route: 042
     Dates: start: 20190227, end: 20190227
  4. HYDROCHLOROTHIAZIDE. [Concomitant]
     Active Substance: HYDROCHLOROTHIAZIDE
     Indication: HYPERTENSION
     Dosage: 12.5 MG, QD
     Route: 048
     Dates: start: 20171017
  5. NORMAL SALINE [Concomitant]
     Active Substance: SODIUM CHLORIDE
     Indication: PRODUCT USED FOR UNKNOWN INDICATION
     Dosage: 1000 ML, QD
     Route: 042
     Dates: start: 20190314, end: 20190314
  6. SAR439459 [Suspect]
     Active Substance: SAR-439459
     Dosage: 0.05 MG/KG, QOW
     Route: 042
     Dates: start: 20190227, end: 20190227
  7. ASPIRIN                            /00002701/ [Concomitant]
     Active Substance: ASPIRIN
     Indication: PULMONARY EMBOLISM
     Dosage: 81 MG, QD
     Route: 048
     Dates: start: 20190109
  8. CEMIPLIMAB [Suspect]
     Active Substance: CEMIPLIMAB
     Indication: COLORECTAL ADENOCARCINOMA
     Dosage: 3 MG/KG, QOW
     Route: 042
     Dates: start: 20190130, end: 20190130
  9. TESSALON [Concomitant]
     Active Substance: BENZONATATE
     Indication: COUGH
     Dosage: 300 MG, QD
     Route: 048
     Dates: start: 20190121
  10. BENADRYL [Concomitant]
     Active Substance: DIPHENHYDRAMINE HYDROCHLORIDE
     Indication: PRODUCT USED FOR UNKNOWN INDICATION
     Dosage: 25 MG, QD
     Route: 048
     Dates: start: 20190227
  11. MUCINEX D [Concomitant]
     Active Substance: GUAIFENESIN\PSEUDOEPHEDRINE HYDROCHLORIDE
     Indication: COUGH
     Dosage: 2 DF, QD
     Route: 048
     Dates: start: 2018

REACTIONS (2)
  - Respiratory failure [Fatal]
  - Hepatic haemorrhage [Recovered/Resolved]

NARRATIVE: CASE EVENT DATE: 20190315
